FAERS Safety Report 10482672 (Version 3)
Quarter: 2015Q1

REPORT INFORMATION
  Report Type: Spontaneous
  Country: NP (occurrence: NP)
  Receive Date: 20140929
  Receipt Date: 20150107
  Transmission Date: 20150720
  Serious: Yes (Death, Other)
  Sender: FDA-Public Use
  Company Number: PHHY2014NP127034

PATIENT
  Age: 9 Year
  Sex: Female

DRUGS (8)
  1. CICLOSPORIN [Suspect]
     Active Substance: CYCLOSPORINE
     Indication: PRODUCT USED FOR UNKNOWN INDICATION
     Dosage: 5 MG/KG, UNK (DIVIDED DOSE FOR MINIMUNM OF 6 MONTH)
     Route: 065
     Dates: start: 20130102
  2. PREDNISOLONE. [Concomitant]
     Active Substance: PREDNISOLONE
     Dosage: (TAPPERED DOSE) UNK
     Route: 048
  3. ATGAM [Suspect]
     Active Substance: EQUINE THYMOCYTE IMMUNE GLOBULIN
     Indication: APLASTIC ANAEMIA
     Dosage: 40 MG/KG, PER DAY 4 TO 6 HOURS INFUSION
     Route: 041
     Dates: start: 20130102
  4. AVIL [Concomitant]
     Active Substance: PHENIRAMINE
     Indication: PRODUCT USED FOR UNKNOWN INDICATION
     Dosage: 25 MG, UNK
     Route: 065
  5. DEXAMETASON [Concomitant]
     Active Substance: DEXAMETHASONE
     Indication: PRODUCT USED FOR UNKNOWN INDICATION
     Dosage: 8 MG, QD
     Route: 042
  6. PARACETAMOL [Concomitant]
     Active Substance: ACETAMINOPHEN
     Indication: PRODUCT USED FOR UNKNOWN INDICATION
     Dosage: 500 MG, UNK
     Route: 065
  7. DEXAMETASON [Concomitant]
     Active Substance: DEXAMETHASONE
     Dosage: 6 MG/M2, UNK
     Route: 065
  8. PREDNISOLONE. [Concomitant]
     Active Substance: PREDNISOLONE
     Indication: PROPHYLAXIS
     Dosage: 1 MG/KG, (0.5 MG TO 1 MG/ KG) FOR 3 DAYS
     Route: 048

REACTIONS (8)
  - Acute respiratory distress syndrome [Fatal]
  - Septic shock [Unknown]
  - Sepsis [Fatal]
  - Pyrexia [Fatal]
  - Dyspnoea [Fatal]
  - Lung infiltration [Unknown]
  - Rales [Unknown]
  - Tachypnoea [Fatal]

NARRATIVE: CASE EVENT DATE: 20130102
